FAERS Safety Report 7490880-8 (Version None)
Quarter: 2011Q2

REPORT INFORMATION
  Report Type: 
  Country: None (occurrence: None)
  Receive Date: 20110517
  Receipt Date: 20110517
  Transmission Date: 20111010
  Serious: Yes (Life-Threatening, Other)
  Sender: FDA-Public Use
  Company Number: None

PATIENT
  Age: 39 Year
  Sex: Female
  Weight: 48.5349 kg

DRUGS (7)
  1. LITHIUM CARBONATE [Concomitant]
  2. ZYPREXA [Concomitant]
  3. DIVALPROEX SODIUM [Suspect]
     Dosage: 500 MG 2 AT BEDTIME
     Dates: start: 20100222, end: 20100924
  4. DIVALPROEX EXTENDED-RELEASE [Suspect]
     Indication: DEPRESSION
     Dosage: 500 MG 2 AT BEDTIME
     Dates: start: 20100219, end: 20101212
  5. DIVALPROEX EXTENDED-RELEASE [Suspect]
     Indication: BIPOLAR DISORDER
     Dosage: 500 MG 2 AT BEDTIME
     Dates: start: 20100219, end: 20101212
  6. DIVALPROEX EXTENDED-RELEASE [Suspect]
     Indication: ANXIETY
     Dosage: 500 MG 2 AT BEDTIME
     Dates: start: 20100219, end: 20101212
  7. RISPERDAL [Concomitant]

REACTIONS (28)
  - HAEMORRHAGE [None]
  - HAEMATOCHEZIA [None]
  - LIVER DISORDER [None]
  - REACTION TO DRUG EXCIPIENTS [None]
  - NAUSEA [None]
  - DIZZINESS [None]
  - LOSS OF CONSCIOUSNESS [None]
  - EPSTEIN-BARR VIRUS INFECTION [None]
  - ACCIDENTAL POISONING [None]
  - COELIAC DISEASE [None]
  - WEIGHT DECREASED [None]
  - VISION BLURRED [None]
  - VOMITING IN PREGNANCY [None]
  - MEDICATION RESIDUE [None]
  - PANIC ATTACK [None]
  - MENSTRUAL DISORDER [None]
  - STRESS [None]
  - VOMITING [None]
  - METAL POISONING [None]
  - CONDITION AGGRAVATED [None]
  - WHITE BLOOD CELL COUNT DECREASED [None]
  - CANDIDIASIS [None]
  - ORAL CANDIDIASIS [None]
  - FATIGUE [None]
  - ANXIETY [None]
  - DRUG EFFECT DECREASED [None]
  - MYOCLONUS [None]
  - GASTROINTESTINAL DISORDER [None]
